FAERS Safety Report 7718812-5 (Version None)
Quarter: 2011Q3

REPORT INFORMATION
  Report Type: 
  Country: None (occurrence: None)
  Receive Date: 20110830
  Receipt Date: 20110819
  Transmission Date: 20111222
  Serious: Yes (Hospitalization)
  Sender: FDA-Public Use
  Company Number: US-ACTELION-A-NJ2011-53051

PATIENT

DRUGS (5)
  1. TRACLEER [Suspect]
     Dosage: 125 MG, BID
     Route: 048
     Dates: start: 20100426, end: 20100609
  2. CALCIUM CHANNEL BLOCKERS [Concomitant]
  3. VIAGRA [Suspect]
  4. TRACLEER [Suspect]
     Dosage: 62.5 MG, BID
     Route: 048
     Dates: start: 20100312, end: 20100425
  5. TRACLEER [Suspect]
     Indication: PULMONARY ARTERIAL HYPERTENSION
     Dosage: 62.5 MG, BID
     Route: 048
     Dates: start: 20100610

REACTIONS (2)
  - BLOOD PRESSURE ABNORMAL [None]
  - MUSCULAR WEAKNESS [None]
